FAERS Safety Report 6251497-6 (Version None)
Quarter: 2009Q2

REPORT INFORMATION
  Report Type: 
  Country: None (occurrence: None)
  Receive Date: 20090626
  Receipt Date: 20090626
  Transmission Date: 20091009
  Serious: No
  Sender: FDA-Public Use
  Company Number: None

PATIENT
  Age: 48 Year
  Sex: Female
  Weight: 93.441 kg

DRUGS (2)
  1. ZICAM MULTI-SYMPTOM SINGLE DOSE SPOONS MATRIXX INITIATIVES, INC [Suspect]
     Indication: NASOPHARYNGITIS
     Dosage: 1 2 TIMES PO
     Route: 048
     Dates: start: 20090408, end: 20090410
  2. ZICAM MULTI-SYMPTOM SINGLE DOSE SPOONS MATRIXX INITIATIVES, INC [Suspect]
     Dosage: 1 1 TIMES PO
     Route: 048
     Dates: start: 20090409, end: 20090409

REACTIONS (2)
  - AGEUSIA [None]
  - ANOSMIA [None]
